FAERS Safety Report 9145323 (Version 1)
Quarter: 2013Q1

REPORT INFORMATION
  Report Type: Spontaneous
  Country: BR (occurrence: BR)
  Receive Date: 20130307
  Receipt Date: 20130307
  Transmission Date: 20140127
  Serious: Yes (Other)
  Sender: FDA-Public Use
  Company Number: BR-ACCORD-016681

PATIENT
  Age: 41 Year
  Sex: Male
  Weight: 94.5 kg

DRUGS (6)
  1. PACLITAXEL [Suspect]
     Indication: BRAIN NEOPLASM MALIGNANT
     Dosage: 2ND CYCLE
     Route: 042
     Dates: start: 20130110, end: 20130110
  2. METOCLOPRAMIDE [Concomitant]
     Route: 042
     Dates: start: 20130110, end: 20130110
  3. DIPHENHYDRAMINE [Concomitant]
     Route: 048
     Dates: start: 20130110, end: 20130110
  4. DEXAMETHASONE [Concomitant]
     Route: 042
     Dates: start: 20130110, end: 20130110
  5. ONDASETRON [Concomitant]
     Route: 042
     Dates: start: 20130110, end: 20130110
  6. RANITIDINE [Concomitant]
     Route: 042
     Dates: start: 20130110, end: 20130110

REACTIONS (4)
  - Erythema [Recovered/Resolved]
  - Hyperhidrosis [Recovered/Resolved]
  - Dyspnoea [Recovered/Resolved]
  - Off label use [Unknown]
